FAERS Safety Report 18972873 (Version 1)
Quarter: 2021Q1

REPORT INFORMATION
  Report Type: Spontaneous
  Country: US (occurrence: US)
  Receive Date: 20210305
  Receipt Date: 20210305
  Transmission Date: 20210420
  Serious: Yes (Hospitalization)
  Sender: FDA-Public Use
  Company Number: None

PATIENT
  Age: 67 Year
  Sex: Female

DRUGS (11)
  1. BUDES/FORMOT [Concomitant]
  2. TORSEMIDE. [Concomitant]
     Active Substance: TORSEMIDE
  3. ZOLPIDEM [Concomitant]
     Active Substance: ZOLPIDEM TARTRATE
  4. SPIRONOLACT [Concomitant]
     Active Substance: SPIRONOLACTONE
  5. AMBRISENTAN [Suspect]
     Active Substance: AMBRISENTAN
     Indication: PULMONARY HYPERTENSION
     Dates: start: 20190926
  6. ADEMPAS [Concomitant]
     Active Substance: RIOCIGUAT
  7. TRAMADOL. [Concomitant]
     Active Substance: TRAMADOL
  8. POT CHLORIDE [Concomitant]
     Active Substance: POTASSIUM CHLORIDE
  9. TRELEGY ELLIPTA [Concomitant]
     Active Substance: FLUTICASONE FUROATE\UMECLIDINIUM BROMIDE\VILANTEROL TRIFENATATE
  10. FEROSUL [Concomitant]
     Active Substance: FERROUS SULFATE
  11. OMEPRAZOLE. [Concomitant]
     Active Substance: OMEPRAZOLE

REACTIONS (1)
  - Haemoglobin decreased [None]

NARRATIVE: CASE EVENT DATE: 20210223
